FAERS Safety Report 21935321 (Version 2)
Quarter: 2023Q1

REPORT INFORMATION
  Report Type: Report from Study
  Country: AR (occurrence: AR)
  Receive Date: 20230201
  Receipt Date: 20230202
  Transmission Date: 20230417
  Serious: Yes (Hospitalization, Other)
  Sender: FDA-Public Use
  Company Number: AR-009507513-2105ARG000923

PATIENT
  Age: 74 Year
  Sex: Female
  Weight: 97 kg

DRUGS (9)
  1. PEMBROLIZUMAB [Suspect]
     Active Substance: PEMBROLIZUMAB
     Indication: Transitional cell carcinoma
     Dosage: 200 MILLIGRAM EVERY 21 DAYS, STRENGHT: 100MG
     Route: 042
     Dates: start: 20210319
  2. PEMBROLIZUMAB [Suspect]
     Active Substance: PEMBROLIZUMAB
     Dosage: 200 MILLIGRAM, Q3W
     Route: 042
     Dates: start: 20221230, end: 20221230
  3. PEMBROLIZUMAB [Suspect]
     Active Substance: PEMBROLIZUMAB
     Dosage: 200 MILLIGRAM
     Route: 042
     Dates: start: 20230118, end: 20230118
  4. LEVOTHYROXINE [Concomitant]
     Active Substance: LEVOTHYROXINE
     Indication: Thyroid disorder
  5. DIAPRESAN [VALSARTAN] [Concomitant]
     Indication: Hypertension
  6. GLUCAL [TENELIGLIPTIN HYDROBROMIDE] [Concomitant]
     Indication: Diabetes mellitus
  7. ENDIAL [GLIMEPIRIDE] [Concomitant]
     Indication: Diabetes mellitus
  8. GLUCOPHAGE [Concomitant]
     Active Substance: METFORMIN HYDROCHLORIDE
     Indication: Diabetes mellitus
  9. DAUNLIP [Concomitant]
     Indication: Diabetes mellitus

REACTIONS (42)
  - Urological examination [Recovered/Resolved]
  - Urological examination [Recovering/Resolving]
  - Administration site bruise [Recovered/Resolved]
  - Poor venous access [Recovered/Resolved]
  - Rotator cuff syndrome [Recovered/Resolved]
  - Electrocardiogram ambulatory abnormal [Recovered/Resolved]
  - Blood pressure fluctuation [Recovered/Resolved]
  - Haemorrhage urinary tract [Recovering/Resolving]
  - Oropharyngeal pain [Recovering/Resolving]
  - Arrhythmia [Recovering/Resolving]
  - Hypersomnia [Recovered/Resolved]
  - Rash [Recovered/Resolved]
  - Fatigue [Recovered/Resolved]
  - Somnolence [Recovered/Resolved]
  - Dizziness [Recovered/Resolved]
  - Laziness [Recovered/Resolved]
  - Pruritus [Recovered/Resolved]
  - Spinal column injury [Recovering/Resolving]
  - Skin lesion [Recovered/Resolved]
  - Back pain [Recovered/Resolved]
  - Spinal pain [Recovered/Resolved]
  - Fat tissue increased [Recovered/Resolved]
  - Scoliosis [Recovered/Resolved]
  - Anger [Recovered/Resolved]
  - Food allergy [Recovered/Resolved]
  - Hypersensitivity [Recovered/Resolved]
  - Sciatic nerve neuropathy [Recovering/Resolving]
  - Swelling [Recovering/Resolving]
  - Nervousness [Unknown]
  - Visual impairment [Unknown]
  - Dry eye [Recovering/Resolving]
  - Anger [Unknown]
  - Blood pressure increased [Recovered/Resolved]
  - Product distribution issue [Unknown]
  - Product use issue [Unknown]
  - Productive cough [Recovering/Resolving]
  - Product use issue [Unknown]
  - Product use issue [Unknown]
  - Product use issue [Unknown]
  - Post procedural haemorrhage [Unknown]
  - Haemorrhage [Recovered/Resolved]
  - Thrombosis [Recovered/Resolved]

NARRATIVE: CASE EVENT DATE: 20210101
